FAERS Safety Report 15061751 (Version 1)
Quarter: 2018Q2

REPORT INFORMATION
  Report Type: Spontaneous
  Country: DE (occurrence: DE)
  Receive Date: 20180625
  Receipt Date: 20180625
  Transmission Date: 20180711
  Serious: Yes (Other)
  Sender: FDA-Public Use
  Company Number: DE-MYLANLABS-2018M1044860

PATIENT
  Age: 58 Year
  Sex: Male

DRUGS (2)
  1. CICLOSPORIN [Suspect]
     Active Substance: CYCLOSPORINE
     Indication: IMMUNOSUPPRESSION
  2. METHOTREXATE. [Suspect]
     Active Substance: METHOTREXATE
     Indication: IMMUNOSUPPRESSION

REACTIONS (6)
  - Venoocclusive liver disease [Unknown]
  - Hepatotoxicity [Unknown]
  - Stomatitis [Unknown]
  - Sepsis [Unknown]
  - Nausea [Unknown]
  - Hyperbilirubinaemia [Unknown]
